FAERS Safety Report 9809464 (Version 3)
Quarter: 2014Q4

REPORT INFORMATION
  Report Type: Spontaneous
  Country: US (occurrence: US)
  Receive Date: 20140110
  Receipt Date: 20141112
  Transmission Date: 20150529
  Serious: Yes (Death, Hospitalization, Other)
  Sender: FDA-Public Use
  Company Number: US-SANOFI-AVENTIS-2011SA064229

PATIENT
  Sex: Male

DRUGS (4)
  1. PLAVIX [Suspect]
     Active Substance: CLOPIDOGREL BISULFATE
     Indication: PROPHYLAXIS
     Route: 065
     Dates: start: 20080423
  2. PLAVIX [Suspect]
     Active Substance: CLOPIDOGREL BISULFATE
     Indication: ANGINA PECTORIS
     Route: 065
     Dates: start: 20080423
  3. PLAVIX [Suspect]
     Active Substance: CLOPIDOGREL BISULFATE
     Indication: PROPHYLAXIS
     Route: 065
     Dates: end: 201009
  4. PLAVIX [Suspect]
     Active Substance: CLOPIDOGREL BISULFATE
     Indication: ANGINA PECTORIS
     Route: 065
     Dates: end: 201009

REACTIONS (13)
  - Blindness [Fatal]
  - Cerebral haemorrhage [Unknown]
  - Thrombotic thrombocytopenic purpura [Fatal]
  - Mobility decreased [Fatal]
  - Gastrointestinal haemorrhage [Unknown]
  - Haemorrhage [Unknown]
  - Mood swings [Fatal]
  - Anaemia [Fatal]
  - Confusional state [Fatal]
  - Platelet count decreased [Fatal]
  - Quality of life decreased [Fatal]
  - Deafness [Unknown]
  - General physical health deterioration [Fatal]

NARRATIVE: CASE EVENT DATE: 201009
